FAERS Safety Report 23348655 (Version 2)
Quarter: 2024Q2

REPORT INFORMATION
  Report Type: Spontaneous
  Country: DE (occurrence: DE)
  Receive Date: 20231229
  Receipt Date: 20240419
  Transmission Date: 20240716
  Serious: Yes (Other)
  Sender: FDA-Public Use
  Company Number: DE-BFARM-23009720

PATIENT
  Sex: Male
  Weight: 77 kg

DRUGS (3)
  1. FINASTERIDE [Suspect]
     Active Substance: FINASTERIDE
     Indication: Androgenetic alopecia
     Dosage: UNK
     Route: 065
     Dates: start: 2010
  2. FINASTERIDE [Suspect]
     Active Substance: FINASTERIDE
     Indication: Androgenetic alopecia
     Dosage: 1 MILLIGRAM, ONCE A DAY
     Route: 065
     Dates: start: 20081113, end: 20090420
  3. PROPECIA [Suspect]
     Active Substance: FINASTERIDE
     Indication: Androgenetic alopecia
     Dosage: 1 MILLIGRAM, ONCE A DAY
     Route: 065
     Dates: start: 20061204, end: 20080407

REACTIONS (24)
  - Erectile dysfunction [Not Recovered/Not Resolved]
  - Suicidal ideation [Not Recovered/Not Resolved]
  - Type 2 diabetes mellitus [Not Recovered/Not Resolved]
  - Anhedonia [Not Recovered/Not Resolved]
  - Anorgasmia [Not Recovered/Not Resolved]
  - Anxiety [Not Recovered/Not Resolved]
  - Apathy [Not Recovered/Not Resolved]
  - Auditory disorder [Not Recovered/Not Resolved]
  - Blood glucose increased [Not Recovered/Not Resolved]
  - Depression [Not Recovered/Not Resolved]
  - Disturbance in sexual arousal [Not Recovered/Not Resolved]
  - Dry eye [Not Recovered/Not Resolved]
  - Ejaculation failure [Not Recovered/Not Resolved]
  - Eye pruritus [Not Recovered/Not Resolved]
  - Eye inflammation [Not Recovered/Not Resolved]
  - Feeling abnormal [Not Recovered/Not Resolved]
  - Impaired quality of life [Not Recovered/Not Resolved]
  - Libido decreased [Not Recovered/Not Resolved]
  - Periorbital swelling [Not Recovered/Not Resolved]
  - Post 5-alpha-reductase inhibitor syndrome [Not Recovered/Not Resolved]
  - Panic attack [Not Recovered/Not Resolved]
  - Skin burning sensation [Not Recovered/Not Resolved]
  - Tinnitus [Not Recovered/Not Resolved]
  - Weight increased [Not Recovered/Not Resolved]
